FAERS Safety Report 10238495 (Version 2)
Quarter: 2014Q2

REPORT INFORMATION
  Report Type: Spontaneous
  Country: US (occurrence: US)
  Receive Date: 20140616
  Receipt Date: 20140619
  Transmission Date: 20141212
  Serious: Yes (Hospitalization)
  Sender: FDA-Public Use
  Company Number: US-SA-2014SA073846

PATIENT
  Age: 64 Year
  Sex: Female

DRUGS (3)
  1. LANTUS SOLOSTAR [Suspect]
     Indication: PRODUCT USED FOR UNKNOWN INDICATION
     Dosage: DOSE:40 UNIT(S)
     Route: 065
     Dates: start: 2007
  2. SOLOSTAR [Suspect]
     Indication: PRODUCT USED FOR UNKNOWN INDICATION
     Dates: start: 2007
  3. HUMALOG [Concomitant]

REACTIONS (4)
  - Coma [Unknown]
  - Blood glucose increased [Unknown]
  - Blood glucose increased [Unknown]
  - Confusional state [Unknown]
